FAERS Safety Report 8442790-7 (Version None)
Quarter: 2012Q2

REPORT INFORMATION
  Report Type: 
  Country: None (occurrence: None)
  Receive Date: 20120615
  Receipt Date: 20120607
  Transmission Date: 20120825
  Serious: Yes (Life-Threatening, Hospitalization)
  Sender: FDA-Public Use
  Company Number: AU-ROCHE-804388

PATIENT
  Sex: Male

DRUGS (19)
  1. FISH OIL [Concomitant]
     Dosage: 2 CAPSULE
     Route: 048
  2. EVENING PRIMROSE OIL [Concomitant]
     Route: 048
  3. VITAMIN D [Concomitant]
     Dosage: 1000 U
     Route: 048
  4. BISACODYL [Concomitant]
     Route: 048
  5. CALCIUM CARBONATE [Concomitant]
     Route: 048
  6. VITAMIN E [Concomitant]
     Route: 048
  7. CRANBERRY [Concomitant]
     Dosage: 1 TAB
     Route: 048
  8. MOVIPREP [Concomitant]
     Dosage: 1 SACHET
  9. BISACODYL [Concomitant]
     Route: 048
  10. DOXEPIN [Concomitant]
     Route: 048
  11. GARLIC [Concomitant]
     Dosage: 1 TAB
     Route: 048
  12. PANTOPRAZOLE [Concomitant]
     Route: 048
  13. ACETAMINOPHEN [Concomitant]
     Route: 048
  14. COD LIVER OIL [Concomitant]
     Dosage: 1 CAP
     Route: 048
  15. FISH OIL [Concomitant]
     Dosage: 1 CAPSULE
     Route: 048
  16. DOXEPIN [Concomitant]
     Route: 048
  17. DIAZEPAM [Concomitant]
     Route: 048
  18. SELENIUM [Concomitant]
     Dosage: 1 TAB
     Route: 048
  19. VEMURAFENIB [Suspect]
     Indication: PRODUCT USED FOR UNKNOWN INDICATION
     Route: 048

REACTIONS (5)
  - SEPTIC SHOCK [None]
  - URINARY TRACT INFECTION [None]
  - PATHOGEN RESISTANCE [None]
  - STAPHYLOCOCCAL INFECTION [None]
  - QUADRIPLEGIA [None]
